FAERS Safety Report 9028222 (Version 4)
Quarter: 2013Q2

REPORT INFORMATION
  Report Type: Spontaneous
  Country: US (occurrence: US)
  Receive Date: 20130124
  Receipt Date: 20130503
  Transmission Date: 20140414
  Serious: Yes (Other)
  Sender: FDA-Public Use
  Company Number: US-PFIZER INC-2013024151

PATIENT
  Age: 70 Year
  Sex: Male

DRUGS (2)
  1. VIAGRA [Suspect]
     Dosage: UNK
  2. HEPARIN [Suspect]
     Dosage: UNK

REACTIONS (7)
  - Aneurysm [Recovered/Resolved]
  - Thrombocytopenia [Recovered/Resolved]
  - Sepsis [Recovered/Resolved]
  - Intestinal infarction [Recovered/Resolved]
  - Amnesia [Not Recovered/Not Resolved]
  - Malaise [Recovered/Resolved]
  - Erectile dysfunction [Unknown]
